FAERS Safety Report 4280796-2 (Version None)
Quarter: 2004Q1

REPORT INFORMATION
  Report Type: 
  Country: None (occurrence: None)
  Receive Date: 20040127
  Receipt Date: 20040121
  Transmission Date: 20041129
  Serious: Yes (Hospitalization, Other)
  Sender: FDA-Public Use
  Company Number: FRWYE527322JAN04

PATIENT
  Age: 23 Year
  Sex: Female

DRUGS (5)
  1. EFFEXOR [Suspect]
     Dosage: ORAL
     Route: 048
     Dates: start: 20031109, end: 20031109
  2. ATARAX [Suspect]
     Dosage: ORAL
     Route: 048
     Dates: start: 20031109, end: 20031109
  3. DEPAMIDE (VALPROMIDE, , 0) [Suspect]
     Dosage: ORAL
     Route: 048
     Dates: start: 20031109, end: 20031109
  4. SERESTA (OXAZEPAM, UNSPEC, ,0) [Suspect]
     Dosage: ORAL
     Route: 048
     Dates: start: 20031109, end: 20031109
  5. TIAPRIDAL (TIAPRIDE, , 0) [Suspect]
     Dosage: ORAL
     Route: 048
     Dates: start: 20031109, end: 20031109

REACTIONS (8)
  - ACUTE RESPIRATORY FAILURE [None]
  - COMA [None]
  - HEART RATE INCREASED [None]
  - HYPOTONIA [None]
  - INTENTIONAL OVERDOSE [None]
  - LARYNGEAL OEDEMA [None]
  - MULTIPLE DRUG OVERDOSE [None]
  - PNEUMONIA ASPIRATION [None]
